FAERS Safety Report 5135507-5 (Version None)
Quarter: 2006Q4

REPORT INFORMATION
  Report Type: 
  Country: None (occurrence: None)
  Receive Date: 20061026
  Receipt Date: 20061016
  Transmission Date: 20070319
  Serious: Yes (Life-Threatening, Hospitalization)
  Sender: FDA-Public Use
  Company Number: US-JNJFOC-20061005552

PATIENT
  Age: 27 Year
  Sex: Male

DRUGS (3)
  1. FENTANYL [Suspect]
     Indication: INTENTIONAL DRUG MISUSE
     Route: 048
  2. ETHANOL [Suspect]
     Indication: INTENTIONAL DRUG MISUSE
     Route: 048
  3. COCAINE [Suspect]
     Indication: INTENTIONAL DRUG MISUSE
     Dosage: A COUPLE OF LINES
     Route: 055

REACTIONS (2)
  - INTENTIONAL DRUG MISUSE [None]
  - RESPIRATORY ARREST [None]
